FAERS Safety Report 15275761 (Version 2)
Quarter: 2018Q4

REPORT INFORMATION
  Report Type: Spontaneous
  Country: US (occurrence: US)
  Receive Date: 20180814
  Receipt Date: 20181023
  Transmission Date: 20190204
  Serious: Yes (Other)
  Sender: FDA-Public Use
  Company Number: US-CELLTRION INC.-2018US019939

PATIENT

DRUGS (1)
  1. INFLECTRA [Suspect]
     Active Substance: INFLIXIMAB-DYYB
     Indication: CROHN^S DISEASE
     Dosage: 5 DF FOR INDUCTION (0,2,6 WEEKS) THEN EVERY 4-6 WEEKS
     Route: 065

REACTIONS (2)
  - Surgery [Unknown]
  - Product prescribing error [Unknown]
